FAERS Safety Report 5131426-9 (Version None)
Quarter: 2006Q4

REPORT INFORMATION
  Report Type: 
  Country: None (occurrence: None)
  Receive Date: 20061020
  Receipt Date: 20061012
  Transmission Date: 20070319
  Serious: Yes (Hospitalization)
  Sender: FDA-Public Use
  Company Number: TW-GLAXOSMITHKLINE-B0442456A

PATIENT
  Age: 33 Year
  Sex: Male

DRUGS (4)
  1. LITHIUM CARBONATE [Suspect]
     Indication: BIPOLAR I DISORDER
     Dosage: 600MG PER DAY
     Route: 065
  2. VALPROIC ACID [Suspect]
     Indication: BIPOLAR I DISORDER
     Dosage: 1000MG PER DAY
     Route: 065
  3. OLANZAPINE [Suspect]
     Indication: BIPOLAR I DISORDER
     Dosage: 5MG PER DAY
     Route: 065
  4. HALOPERIDOL [Concomitant]
     Indication: BIPOLAR I DISORDER
     Dosage: 20MG PER DAY
     Route: 065

REACTIONS (9)
  - BLOOD GLUCOSE INCREASED [None]
  - BLOOD OSMOLARITY INCREASED [None]
  - DRUG INTERACTION [None]
  - GLUCOSE URINE PRESENT [None]
  - GLYCOSYLATED HAEMOGLOBIN INCREASED [None]
  - HYPEROSMOLAR STATE [None]
  - MALAISE [None]
  - POLYDIPSIA [None]
  - POLYURIA [None]
